FAERS Safety Report 24280095 (Version 1)
Quarter: 2024Q3

REPORT INFORMATION
  Report Type: Spontaneous
  Country: CA (occurrence: CA)
  Receive Date: 20240904
  Receipt Date: 20240904
  Transmission Date: 20241017
  Serious: Yes (Death)
  Sender: CELLTRION
  Company Number: CA-CELLTRION INC.-2024CA020570

PATIENT

DRUGS (2)
  1. BEVACIZUMAB [Suspect]
     Active Substance: BEVACIZUMAB
     Indication: Product used for unknown indication
     Route: 047
  2. LUCENTIS [Suspect]
     Active Substance: RANIBIZUMAB
     Indication: Product used for unknown indication
     Dosage: 0.5 MILLIGRAM (DOSAGE FORM: SOLUTION INTRAVITREAL)
     Route: 047

REACTIONS (3)
  - Death [Fatal]
  - Off label use [Fatal]
  - Intentional product use issue [Unknown]
